FAERS Safety Report 8473173-1 (Version None)
Quarter: 2012Q2

REPORT INFORMATION
  Report Type: 
  Country: None (occurrence: None)
  Receive Date: 20120627
  Receipt Date: 20120614
  Transmission Date: 20120825
  Serious: Yes (Other)
  Sender: FDA-Public Use
  Company Number: CHPA2012US013026

PATIENT
  Age: 39 Year
  Sex: Female

DRUGS (1)
  1. EXCEDRIN (MIGRAINE) [Suspect]
     Indication: MIGRAINE
     Dosage: 2 TO 4 DF A DAY, 4 TO 5 TIMES A WEEK
     Route: 048
     Dates: start: 19980101

REACTIONS (2)
  - OVERDOSE [None]
  - BRAIN NEOPLASM [None]
